FAERS Safety Report 4470185-X (Version None)
Quarter: 2004Q3

REPORT INFORMATION
  Report Type: 
  Country: None (occurrence: None)
  Receive Date: 20040910
  Receipt Date: 20040805
  Transmission Date: 20050211
  Serious: No
  Sender: FDA-Public Use
  Company Number: 2004227370US

PATIENT
  Age: 67 Year
  Sex: Female
  Weight: 62.1 kg

DRUGS (7)
  1. BEXTRA [Suspect]
     Dosage: 20 MG, QD, ORAL
     Route: 048
     Dates: start: 20020101
  2. ALTACE [Concomitant]
  3. SYNTHROID [Concomitant]
  4. GLUCOSAMINE [Concomitant]
  5. CHONDROITIN [Concomitant]
  6. MULTIVITAMIN [Concomitant]
  7. CALCIUM [Concomitant]

REACTIONS (4)
  - DRUG INEFFECTIVE [None]
  - HEADACHE [None]
  - INSOMNIA [None]
  - RESTLESSNESS [None]
